FAERS Safety Report 4904849-8 (Version None)
Quarter: 2006Q1

REPORT INFORMATION
  Report Type: 
  Country: None (occurrence: None)
  Receive Date: 20060208
  Receipt Date: 20051012
  Transmission Date: 20060701
  Serious: No
  Sender: FDA-Public Use
  Company Number: US-GLAXOSMITHKLINE-A0578005A

PATIENT
  Age: 54 Year
  Sex: Female

DRUGS (1)
  1. PAROXETINE HCL [Suspect]
     Dosage: 20MG PER DAY
     Route: 048
     Dates: start: 20050901

REACTIONS (3)
  - ANXIETY [None]
  - DISCOMFORT [None]
  - OBSESSIVE-COMPULSIVE DISORDER [None]
